FAERS Safety Report 5005130-1 (Version None)
Quarter: 2006Q2

REPORT INFORMATION
  Report Type: 
  Country: None (occurrence: None)
  Receive Date: 20060516
  Receipt Date: 20060516
  Transmission Date: 20061013
  Serious: No
  Sender: FDA-Public Use
  Company Number: None

PATIENT
  Age: 68 Year
  Sex: Male

DRUGS (3)
  1. ASPIRIN [Suspect]
     Dosage: 325MG  DAILY
     Dates: start: 20060313, end: 20060326
  2. MELOXICAM [Suspect]
     Indication: BACK PAIN
     Dosage: 7.5MG DAILY
     Dates: start: 20060313, end: 20060326
  3. NAPROXEN [Suspect]

REACTIONS (3)
  - DUODENAL ULCER [None]
  - HAEMATOCRIT DECREASED [None]
  - POST PROCEDURAL COMPLICATION [None]
